FAERS Safety Report 4534808-9 (Version None)
Quarter: 2004Q4

REPORT INFORMATION
  Report Type: 
  Country: None (occurrence: None)
  Receive Date: 20041222
  Receipt Date: 20040322
  Transmission Date: 20050328
  Serious: No
  Sender: FDA-Public Use
  Company Number: US-BRISTOL-MYERS SQUIBB COMPANY-12539425

PATIENT
  Age: 60 Year
  Sex: Female
  Weight: 58 kg

DRUGS (4)
  1. PRAVACHOL [Suspect]
  2. HYDROCHLOROTHIAZIDE [Concomitant]
  3. DHEA [Concomitant]
  4. ESTROL [Concomitant]

REACTIONS (2)
  - CHEST PAIN [None]
  - MYALGIA [None]
